FAERS Safety Report 7642454 (Version 2)
Quarter: 2014Q1

REPORT INFORMATION
  Report Type: Spontaneous
  Country: US (occurrence: US)
  Receive Date: 20101027
  Receipt Date: 20140217
  Transmission Date: 20141002
  Serious: Yes (Other)
  Sender: FDA-Public Use
  Company Number: US-BAYER-201038316NA

PATIENT
  Age: 19 Year
  Sex: Female
  Weight: 114 kg

DRUGS (1)
  1. YAZ [Suspect]
     Dosage: UNK
     Route: 048
     Dates: start: 20071112, end: 20080224

REACTIONS (3)
  - Cholelithiasis [Unknown]
  - Abdominal pain [Unknown]
  - Abdominal pain upper [Unknown]
